FAERS Safety Report 16195559 (Version 3)
Quarter: 2019Q2

REPORT INFORMATION
  Report Type: Spontaneous
  Country: US (occurrence: US)
  Receive Date: 20190415
  Receipt Date: 20190618
  Transmission Date: 20190711
  Serious: No
  Sender: FDA-Public Use
  Company Number: US-GW PHARMA-201901USGW0079

PATIENT

DRUGS (3)
  1. EPIDIOLEX [Suspect]
     Active Substance: CANNABIDIOL
     Indication: PRODUCT USED FOR UNKNOWN INDICATION
     Dosage: 75 MILLIGRAM, BID
     Route: 065
     Dates: start: 201812, end: 201901
  2. EPIDIOLEX [Suspect]
     Active Substance: CANNABIDIOL
     Dosage: 75 MILLIGRAM, BID
     Route: 048
     Dates: start: 201901
  3. EPIDIOLEX [Suspect]
     Active Substance: CANNABIDIOL
     Dosage: 150 MILLIGRAM, BID
     Route: 048
     Dates: start: 201901, end: 201901

REACTIONS (1)
  - Insomnia [Recovered/Resolved]
